FAERS Safety Report 23385863 (Version 1)
Quarter: 2024Q1

REPORT INFORMATION
  Report Type: Spontaneous
  Country: US (occurrence: US)
  Receive Date: 20240110
  Receipt Date: 20240110
  Transmission Date: 20240410
  Serious: No
  Sender: FDA-Public Use
  Company Number: US-LEO Pharma-366576

PATIENT
  Age: 60 Year
  Sex: Female

DRUGS (1)
  1. ADBRY [Suspect]
     Active Substance: TRALOKINUMAB-LDRM
     Indication: Dermatitis atopic
     Dosage: 600 MG ON DAY 1 SUBCUTANEOUSLY
     Route: 058
     Dates: start: 202312

REACTIONS (3)
  - Eye pruritus [Unknown]
  - Ocular hyperaemia [Unknown]
  - Pruritus [Unknown]

NARRATIVE: CASE EVENT DATE: 20240103
